FAERS Safety Report 9024668 (Version 1)
Quarter: 2013Q1

REPORT INFORMATION
  Report Type: Report from Study
  Country: US (occurrence: US)
  Receive Date: 20130121
  Receipt Date: 20130121
  Transmission Date: 20140127
  Serious: Yes (Hospitalization)
  Sender: FDA-Public Use
  Company Number: US-BIOGENIDEC-2012BI010828

PATIENT
  Age: 57 Year
  Sex: Female
  Weight: 82 kg

DRUGS (22)
  1. TYSABRI [Suspect]
     Indication: MULTIPLE SCLEROSIS
     Route: 042
     Dates: start: 20081114
  2. NAPROXEN [Concomitant]
     Route: 048
  3. BUDEPRION XL [Concomitant]
     Route: 048
  4. LASIX [Concomitant]
     Indication: FLUID RETENTION
     Route: 048
  5. ZIAC [Concomitant]
     Indication: BLOOD PRESSURE
     Route: 048
  6. ADVAIR DISKUS [Concomitant]
     Route: 055
  7. ALBUTEROL SULFATE [Concomitant]
     Route: 055
  8. BACLOFEN [Concomitant]
     Route: 048
  9. PROAIR HFA [Concomitant]
     Route: 055
  10. PROZAC [Concomitant]
     Route: 048
  11. SPIRIVA [Concomitant]
     Route: 055
  12. TRAMADOL HCL [Concomitant]
     Indication: PAIN
     Route: 048
  13. WELLBUTRIN SR [Concomitant]
     Route: 048
  14. ZOVIRAX [Concomitant]
     Route: 048
  15. ASPIRIN [Concomitant]
     Route: 048
  16. MULTIVITAMINS [Concomitant]
     Route: 048
  17. CALTRATE [Concomitant]
     Route: 048
  18. PEPCID [Concomitant]
     Route: 048
  19. LIPITOR [Concomitant]
     Route: 048
  20. TRIAMCINOLONE [Concomitant]
     Indication: PSORIASIS
     Route: 061
  21. THEO 24 [Concomitant]
     Route: 048
  22. TAMIFLU [Concomitant]
     Route: 048
     Dates: start: 20120223

REACTIONS (3)
  - Citrobacter infection [Recovered/Resolved]
  - Pyrexia [Unknown]
  - Chronic obstructive pulmonary disease [Recovered/Resolved]
